FAERS Safety Report 7053443-4 (Version None)
Quarter: 2010Q4

REPORT INFORMATION
  Report Type: 
  Country: None (occurrence: None)
  Receive Date: 20101015
  Receipt Date: 20101007
  Transmission Date: 20110411
  Serious: Yes (Other)
  Sender: FDA-Public Use
  Company Number: 2010SP054024

PATIENT
  Sex: Female

DRUGS (1)
  1. PEG-INTRON [Suspect]
     Dosage: SC
     Route: 058

REACTIONS (1)
  - AUTOIMMUNE HEPATITIS [None]
